FAERS Safety Report 19546579 (Version 3)
Quarter: 2022Q1

REPORT INFORMATION
  Report Type: Spontaneous
  Country: DE (occurrence: DE)
  Receive Date: 20210714
  Receipt Date: 20220114
  Transmission Date: 20220424
  Serious: Yes (Hospitalization, Other)
  Sender: FDA-Public Use
  Company Number: DE-002147023-NVSC2021DE136633

PATIENT
  Age: 80 Year
  Sex: Female
  Weight: 66 kg

DRUGS (5)
  1. LETROZOLE [Suspect]
     Active Substance: LETROZOLE
     Indication: Breast cancer
     Dosage: 2.5 MILLIGRAM DAILY;
     Route: 048
     Dates: start: 20201002
  2. DICLOFENAC [Suspect]
     Active Substance: DICLOFENAC
     Indication: Product used for unknown indication
     Dosage: 150 MILLIGRAM DAILY; 75 MG, BID (DAILY (1-0-1)); THERAPY START DATE AND END DATE : ASKU
     Route: 065
  3. PALBOCICLIB [Suspect]
     Active Substance: PALBOCICLIB
     Indication: Breast cancer
     Dosage: 125 MILLIGRAM DAILY; 125 MG, QD (FROM DAY 1 TO DAY 21 EVERY 28-DAY CYCLE)
     Route: 048
     Dates: start: 20201002
  4. CLOPIDOGREL [Concomitant]
     Active Substance: CLOPIDOGREL BISULFATE
     Indication: Upper gastrointestinal haemorrhage
     Dosage: UNK
     Route: 065
     Dates: start: 20210214
  5. DEXPANTHENOL [Concomitant]
     Active Substance: DEXPANTHENOL
     Indication: Dermatitis
     Dosage: UNK
     Route: 065
     Dates: start: 20201016

REACTIONS (1)
  - Intestinal haemorrhage [Recovered/Resolved]

NARRATIVE: CASE EVENT DATE: 20210503
